FAERS Safety Report 16450271 (Version 1)
Quarter: 2019Q3

REPORT INFORMATION
  Report Type: Spontaneous
  Country: US (occurrence: US)
  Receive Date: 20190618
  Receipt Date: 20190618
  Transmission Date: 20191004
  Serious: No
  Sender: FDA-Public Use
  Company Number: None

PATIENT
  Age: 66 Year
  Sex: Male

DRUGS (1)
  1. OZEMPIC [Suspect]
     Active Substance: SEMAGLUTIDE
     Dosage: ?          OTHER FREQUENCY:WEEKLY;?
     Route: 058
     Dates: start: 20190522, end: 20190617

REACTIONS (4)
  - Feeding disorder [None]
  - Constipation [None]
  - Fluid intake reduced [None]
  - Abdominal discomfort [None]

NARRATIVE: CASE EVENT DATE: 20190617
